FAERS Safety Report 24986197 (Version 1)
Quarter: 2025Q1

REPORT INFORMATION
  Report Type: Spontaneous
  Country: US (occurrence: None)
  Receive Date: 20250218
  Receipt Date: 20250218
  Transmission Date: 20250409
  Serious: Yes (Other)
  Sender: FDA-CTU
  Company Number: None

PATIENT
  Sex: Female

DRUGS (1)
  1. KETAMINE [Suspect]
     Active Substance: KETAMINE
     Indication: Anxiety
     Route: 060

REACTIONS (8)
  - Product dispensing error [None]
  - Product solubility abnormal [None]
  - Product physical issue [None]
  - Anxiety [None]
  - Headache [None]
  - Insomnia [None]
  - Confusional state [None]
  - Emotional disorder [None]

NARRATIVE: CASE EVENT DATE: 20241201
